FAERS Safety Report 8606296-4 (Version None)
Quarter: 2012Q3

REPORT INFORMATION
  Report Type: 
  Country: None (occurrence: None)
  Receive Date: 20120820
  Receipt Date: 20120813
  Transmission Date: 20120928
  Serious: Yes (Other)
  Sender: FDA-Public Use
  Company Number: CA-TEVA-353940USA

PATIENT
  Age: 57 Year
  Sex: Female

DRUGS (6)
  1. MYCOPHENOLIC ACID [Suspect]
     Indication: PROPHYLAXIS AGAINST TRANSPLANT REJECTION
     Route: 065
  2. PREDNISONE TAB [Suspect]
     Indication: PROPHYLAXIS AGAINST TRANSPLANT REJECTION
     Dosage: 5MG DAILY
     Route: 065
  3. INFLIXIMAB [Suspect]
     Indication: CROHN'S DISEASE
     Dosage: 5 MG/KG INFUSIONS AT WEEK 0, 2, 10 (INDUCTION); THEN EVERY 8W FOR 3M
     Route: 050
  4. ADALIMUMAB [Suspect]
     Indication: CROHN'S DISEASE
     Dosage: EVERY OTHER WEEK
     Route: 058
  5. INFLIXIMAB [Suspect]
     Dosage: INFUSIONS FOR 3M
     Route: 050
  6. TACROLIMUS [Suspect]
     Indication: PROPHYLAXIS AGAINST TRANSPLANT REJECTION
     Dosage: 2MG DAILY
     Route: 065

REACTIONS (1)
  - COLORECTAL CANCER [None]
